FAERS Safety Report 18968969 (Version 1)
Quarter: 2021Q1

REPORT INFORMATION
  Report Type: Spontaneous
  Country: US (occurrence: US)
  Receive Date: 20210304
  Receipt Date: 20210304
  Transmission Date: 20210420
  Serious: Yes (Hospitalization, Disabling)
  Sender: FDA-Public Use
  Company Number: None

PATIENT
  Age: 78 Year
  Sex: Female
  Weight: 76.5 kg

DRUGS (4)
  1. LORAZEPAM. [Concomitant]
     Active Substance: LORAZEPAM
  2. NITROFURANTOIN MACROCRYSTALS [Suspect]
     Active Substance: NITROFURANTOIN
     Indication: URINARY TRACT INFECTION
     Dosage: ?          QUANTITY:20 TABLET(S);?
     Route: 048
     Dates: start: 20210127, end: 20210204
  3. ATENOLOL. [Concomitant]
     Active Substance: ATENOLOL
  4. SIMVASTIN [Concomitant]
     Active Substance: SIMVASTATIN

REACTIONS (3)
  - Stress [None]
  - Musculoskeletal stiffness [None]
  - Back pain [None]

NARRATIVE: CASE EVENT DATE: 20210127
